FAERS Safety Report 9618063 (Version 1)
Quarter: 2013Q4

REPORT INFORMATION
  Report Type: Spontaneous
  Country: KR (occurrence: KR)
  Receive Date: 20131012
  Receipt Date: 20131012
  Transmission Date: 20140711
  Serious: Yes (Hospitalization)
  Sender: FDA-Public Use
  Company Number: KR-INDICUS PHARMA-000106

PATIENT
  Age: 62 Year
  Sex: Male

DRUGS (6)
  1. METFORMIN HYDROCHLORIDE [Suspect]
     Indication: DIABETES MELLITUS
  2. AMLODIPINE [Concomitant]
  3. VALSARTAN [Concomitant]
  4. CALCIUM CARBONATE [Concomitant]
  5. VITAMIN B+C [Concomitant]
  6. GLICLAZIDE [Concomitant]

REACTIONS (1)
  - Encephalopathy [Recovered/Resolved]
